FAERS Safety Report 11690896 (Version 4)
Quarter: 2016Q1

REPORT INFORMATION
  Report Type: Spontaneous
  Country: US (occurrence: US)
  Receive Date: 20151102
  Receipt Date: 20160222
  Transmission Date: 20160525
  Serious: Yes (Hospitalization, Other)
  Sender: FDA-Public Use
  Company Number: US-PFIZER INC-2015365071

PATIENT
  Age: 56 Year
  Sex: Female
  Weight: 43 kg

DRUGS (6)
  1. ALDACTONE [Suspect]
     Active Substance: SPIRONOLACTONE
     Indication: ASCITES
     Dosage: 300 MG, 1X/DAY (THREE PILLS IN THE MORNING)
     Route: 048
     Dates: start: 201411
  2. OMEPRAZOLE. [Concomitant]
     Active Substance: OMEPRAZOLE
     Indication: GASTROOESOPHAGEAL REFLUX DISEASE
     Dosage: 40 MG, UNK
     Dates: start: 201412
  3. XIFAXAN [Concomitant]
     Active Substance: RIFAXIMIN
     Indication: LIVER DISORDER
     Dosage: 550 MG, 2X/DAY
     Dates: start: 201501
  4. LACTULOSE. [Concomitant]
     Active Substance: LACTULOSE
     Indication: LIVER DISORDER
     Dosage: (2 TABLE SPOONS), 3X/DAY
     Dates: start: 201411
  5. FUROSEMIDE. [Suspect]
     Active Substance: FUROSEMIDE
     Indication: ASCITES
     Dosage: 60 MG, 1X/DAY (THREE TABLETS)
     Dates: start: 201411
  6. SPIRONOLACTONE. [Suspect]
     Active Substance: SPIRONOLACTONE
     Indication: ASCITES
     Dosage: 300 MG, 1X/DAY (THREE PILLS IN THE MORNING)
     Route: 048
     Dates: start: 201411

REACTIONS (1)
  - Throat cancer [Recovered/Resolved]

NARRATIVE: CASE EVENT DATE: 201506
